FAERS Safety Report 6516099-2 (Version None)
Quarter: 2009Q4

REPORT INFORMATION
  Report Type: 
  Country: None (occurrence: None)
  Receive Date: 20091217
  Receipt Date: 20071008
  Transmission Date: 20100525
  Serious: Yes (Hospitalization)
  Sender: FDA-Public Use
  Company Number: 2007-01063FE

PATIENT
  Age: 34 Year
  Sex: Female

DRUGS (7)
  1. MENOPUR [Suspect]
     Indication: INFERTILITY
     Dosage: (75 IU SUBCUTANEOUS)
     Route: 058
  2. FEMTRAN [Suspect]
     Indication: INFERTILITY
  3. PROMETRIUM [Suspect]
     Indication: INFERTILITY
  4. GANIRELIX ACETATE INJECTION [Suspect]
     Indication: INFERTILITY
  5. FOLLISTIM [Suspect]
     Indication: INFERTILITY
     Dosage: (450 IU SUBCUTANEOUS)
     Route: 058
  6. CHORIONIC GONADOTROPIN [Suspect]
     Indication: INFERTILITY
     Dosage: (10000 IU 1X SUBCUTANEOUS)
     Route: 058
  7. PROGESTERONE [Suspect]
     Indication: INFERTILITY
     Dates: end: 20060928

REACTIONS (1)
  - VENOUS THROMBOSIS [None]
